FAERS Safety Report 16175535 (Version 1)
Quarter: 2019Q2

REPORT INFORMATION
  Report Type: Spontaneous
  Country: FR (occurrence: FR)
  Receive Date: 20190409
  Receipt Date: 20190409
  Transmission Date: 20190711
  Serious: Yes (Other)
  Sender: FDA-Public Use
  Company Number: FR-TEVA-2019-FR-1034628

PATIENT
  Age: 52 Year
  Sex: Male

DRUGS (2)
  1. TRAMADOL. [Suspect]
     Active Substance: TRAMADOL
     Dosage: 8 DOSAGE FORMS DAILY;
     Route: 048
     Dates: start: 20180901
  2. PADERYL 19,5 MG, COMPRIM? ENROB? [Suspect]
     Active Substance: CODEINE PHOSPHATE
     Dosage: 20 DOSAGE FORMS DAILY;
     Route: 048

REACTIONS (1)
  - Drug dependence [Not Recovered/Not Resolved]
